FAERS Safety Report 5467983-2 (Version None)
Quarter: 2007Q3

REPORT INFORMATION
  Report Type: 
  Country: None (occurrence: None)
  Receive Date: 20070925
  Receipt Date: 20070925
  Transmission Date: 20080115
  Serious: Yes (Other)
  Sender: FDA-Public Use
  Company Number: None

PATIENT
  Sex: Female
  Weight: 72.1219 kg

DRUGS (2)
  1. SIMVASTATIN [Suspect]
     Indication: BLOOD CHOLESTEROL
     Dosage: 1 TAB. DAILY ORAL
     Route: 048
     Dates: start: 20070501
  2. ZOCOR [Concomitant]

REACTIONS (1)
  - SENSORY DISTURBANCE [None]
